FAERS Safety Report 26101360 (Version 1)
Quarter: 2025Q4

REPORT INFORMATION
  Report Type: Spontaneous
  Country: EU (occurrence: EU)
  Receive Date: 20251128
  Receipt Date: 20251128
  Transmission Date: 20260117
  Serious: Yes (Other)
  Sender: ROCHE
  Company Number: EU-ROCHE-10000444078

PATIENT
  Age: 45 Year
  Sex: Female
  Weight: 83 kg

DRUGS (7)
  1. PHESGO [Suspect]
     Active Substance: HYALURONIDASE-ZZXF\PERTUZUMAB\TRASTUZUMAB
     Indication: HER2 positive breast cancer
     Dosage: 600/600 MG (AFTER THE FIRST LOADING DOSE).
     Route: 065
  2. DOCETAXEL [Suspect]
     Active Substance: DOCETAXEL
     Indication: HER2 positive breast cancer
     Dosage: DOCETAXEL 75 MG/M2
     Route: 065
  3. CARBOPLATIN [Suspect]
     Active Substance: CARBOPLATIN
     Indication: HER2 positive breast cancer
     Dosage: 4 CYCLES OF CARBOPLATIN AUC 4
     Route: 065
  4. EPIRUBICIN [Concomitant]
     Active Substance: EPIRUBICIN
     Dosage: 4 CYCLES OF EPIRUBICIN 90 MG/M2
     Dates: start: 20250131, end: 20250317
  5. CYCLOPHOSPHAMIDE [Concomitant]
     Active Substance: CYCLOPHOSPHAMIDE
     Dosage: 600 MG/M2
  6. PEGFILGRASTIM [Concomitant]
     Active Substance: PEGFILGRASTIM
  7. GRANISETRON [Concomitant]
     Active Substance: GRANISETRON

REACTIONS (2)
  - Fibrosis [Unknown]
  - Tumour invasion [Unknown]
